FAERS Safety Report 7237547-9 (Version None)
Quarter: 2011Q1

REPORT INFORMATION
  Report Type: 
  Country: None (occurrence: None)
  Receive Date: 20110113
  Receipt Date: 20110107
  Transmission Date: 20110831
  Serious: Yes (Other)
  Sender: FDA-Public Use
  Company Number: TRP_06638_2009

PATIENT
  Sex: Female

DRUGS (2)
  1. PEGASYS [Suspect]
     Indication: PRODUCT USED FOR UNKNOWN INDICATION
     Dosage: DF
  2. RIBASPHERE [Suspect]
     Indication: PRODUCT USED FOR UNKNOWN INDICATION
     Dosage: DF

REACTIONS (8)
  - ANAEMIA [None]
  - RASH [None]
  - COUGH [None]
  - ANTIBODY TEST POSITIVE [None]
  - PANCYTOPENIA [None]
  - WEIGHT DECREASED [None]
  - NAUSEA [None]
  - FATIGUE [None]
